FAERS Safety Report 20791289 (Version 1)
Quarter: 2022Q2

REPORT INFORMATION
  Report Type: Spontaneous
  Country: US (occurrence: US)
  Receive Date: 20220505
  Receipt Date: 20220505
  Transmission Date: 20220720
  Serious: Yes (Hospitalization)
  Sender: FDA-Public Use
  Company Number: US-NOVARTISPH-NVSC2021US056478

PATIENT
  Age: 14 Year
  Sex: Male
  Weight: 30.6 kg

DRUGS (6)
  1. KYMRIAH [Suspect]
     Active Substance: TISAGENLECLEUCEL
     Indication: Acute lymphocytic leukaemia
     Dosage: UNK UNK, ONCE/SINGLE
     Route: 042
     Dates: start: 20200831
  2. VANCOMYCIN [Concomitant]
     Active Substance: VANCOMYCIN
     Indication: Neutropenia
     Dosage: 15 MG/KG, Q8H
     Route: 042
     Dates: start: 20200901, end: 20200903
  3. VANCOMYCIN [Concomitant]
     Active Substance: VANCOMYCIN
     Dosage: 15 MG/KG, Q12H
     Route: 042
     Dates: start: 20200906, end: 20200908
  4. CEFEPIME [Concomitant]
     Active Substance: CEFEPIME HYDROCHLORIDE
     Indication: Neutropenia
     Dosage: 1540 MG, Q8H
     Route: 042
     Dates: start: 20200901, end: 20200903
  5. CEFEPIME [Concomitant]
     Active Substance: CEFEPIME HYDROCHLORIDE
     Dosage: 1540 MG, Q8H
     Route: 042
     Dates: start: 20200906, end: 20200908
  6. KEPPRA [Concomitant]
     Active Substance: LEVETIRACETAM
     Indication: Seizure prophylaxis
     Dosage: 10 MG/KG, Q12H
     Route: 042
     Dates: start: 20200901, end: 20200911

REACTIONS (6)
  - Cytokine release syndrome [Recovered/Resolved]
  - Pyrexia [Unknown]
  - Hypotension [Unknown]
  - Tachycardia [Unknown]
  - Mucosal inflammation [Unknown]
  - Respiratory distress [Unknown]

NARRATIVE: CASE EVENT DATE: 20200901
